FAERS Safety Report 10146769 (Version 1)
Quarter: 2014Q2

REPORT INFORMATION
  Report Type: Spontaneous
  Country: US (occurrence: US)
  Receive Date: 20140501
  Receipt Date: 20140501
  Transmission Date: 20141212
  Serious: No
  Sender: FDA-Public Use
  Company Number: US-BAUSCH-BL-2013-002980

PATIENT
  Age: 79 Year
  Sex: Male

DRUGS (7)
  1. LOTEMAX (LOTEPREDNOL ETABONATE OPHTHALMIC SUSPENSION 0.5%) [Suspect]
     Indication: POSTOPERATIVE CARE
     Dosage: 1 DROP; FOUR TIMES A DAY; RIGHT EYE
     Route: 047
     Dates: start: 201304, end: 201304
  2. LOTEMAX (LOTEPREDNOL ETABONATE OPHTHALMIC SUSPENSION 0.5%) [Suspect]
     Dosage: 1 DROP; FOUR TIMES A DAY; LEFT EYE
     Route: 047
     Dates: start: 201305, end: 201305
  3. BROMDAY 0.09% [Suspect]
     Indication: PREOPERATIVE CARE
     Dosage: 1 DROP; DAILY; RIGHT EYE
     Route: 047
     Dates: start: 201304, end: 201305
  4. BROMDAY 0.09% [Suspect]
     Indication: POSTOPERATIVE CARE
     Dosage: 1 DROP; DAILY; LEFT EYE
     Route: 047
     Dates: start: 201305
  5. BESIVANCE (BESIFLOXACIN OPHTHALMIC SUSPENSION) 0.6% [Suspect]
     Indication: PREOPERATIVE CARE
     Dosage: 1 DROP; TWICE A DAY; RIGHT EYE
     Route: 047
     Dates: start: 201304, end: 201304
  6. BESIVANCE (BESIFLOXACIN OPHTHALMIC SUSPENSION) 0.6% [Suspect]
     Indication: POSTOPERATIVE CARE
     Dosage: 1 DROP; TWICE A DAY; LEFT EYE
     Route: 047
     Dates: start: 201305, end: 201305
  7. BESIVANCE (BESIFLOXACIN OPHTHALMIC SUSPENSION) 0.6% [Suspect]
     Indication: OFF LABEL USE

REACTIONS (1)
  - Madarosis [Not Recovered/Not Resolved]
